FAERS Safety Report 6654762-3 (Version None)
Quarter: 2010Q1

REPORT INFORMATION
  Report Type: 
  Country: None (occurrence: None)
  Receive Date: 20100328
  Receipt Date: 20100318
  Transmission Date: 20100710
  Serious: Yes (Other)
  Sender: FDA-Public Use
  Company Number: FR-BRISTOL-MYERS SQUIBB COMPANY-14954366

PATIENT
  Age: 81 Year
  Sex: Male
  Weight: 69 kg

DRUGS (7)
  1. ELISOR TABS [Suspect]
     Dosage: 20MG INTITALLY;DAILY DOSE WAS INCREASED TO 40 MG FROM JULY 2008
     Dates: start: 20060201
  2. PREVISCAN [Concomitant]
  3. KARDEGIC [Concomitant]
     Dosage: KARDEGIC 75
  4. COVERSYL [Concomitant]
  5. SECTRAL [Concomitant]
  6. LASILIX FAIBLE [Concomitant]
  7. VASTAREL [Concomitant]

REACTIONS (5)
  - ACUTE CORONARY SYNDROME [None]
  - AXONAL NEUROPATHY [None]
  - LOSS OF CONSCIOUSNESS [None]
  - RADICULOPATHY [None]
  - SENSORY DISTURBANCE [None]
